FAERS Safety Report 9287733 (Version 3)
Quarter: 2013Q2

REPORT INFORMATION
  Report Type: Report from Study
  Country: CZ (occurrence: CZ)
  Receive Date: 20130514
  Receipt Date: 20130522
  Transmission Date: 20140414
  Serious: Yes (Life-Threatening)
  Sender: FDA-Public Use
  Company Number: CZ-BAYER-2013-056356

PATIENT
  Age: 61 Year
  Sex: Male
  Weight: 91 kg

DRUGS (4)
  1. REGORAFENIB [Suspect]
     Indication: COLORECTAL CANCER
     Dosage: CYCLE 1, 160 MG PER DAY
     Route: 048
     Dates: start: 20130308, end: 20130328
  2. REGORAFENIB [Suspect]
     Indication: COLORECTAL CANCER
     Dosage: CYCLE 2, 160MG PER DAY
     Route: 048
     Dates: start: 20130405, end: 20130426
  3. REGORAFENIB [Suspect]
     Indication: COLORECTAL CANCER
     Dosage: 160 MG DAILY (40 MG X 4)
     Route: 048
     Dates: start: 20130504
  4. TRIASYN [Concomitant]
     Indication: HYPERTENSION
     Dosage: 5/5MG, QD
     Route: 048
     Dates: start: 200303

REACTIONS (1)
  - Alanine aminotransferase increased [Not Recovered/Not Resolved]
